FAERS Safety Report 20416444 (Version 2)
Quarter: 2022Q1

REPORT INFORMATION
  Report Type: Spontaneous
  Country: US (occurrence: US)
  Receive Date: 20220202
  Receipt Date: 20220215
  Transmission Date: 20220424
  Serious: Yes (Hospitalization)
  Sender: FDA-Public Use
  Company Number: US-BIOGEN-2022BI01090625

PATIENT
  Sex: Female

DRUGS (1)
  1. VUMERITY [Suspect]
     Active Substance: DIROXIMEL FUMARATE
     Indication: Multiple sclerosis
     Route: 065
     Dates: start: 20220129

REACTIONS (6)
  - Headache [Unknown]
  - Spinal pain [Unknown]
  - Intentional underdose [Unknown]
  - Viral infection [Unknown]
  - Pharyngitis streptococcal [Unknown]
  - COVID-19 [Unknown]
